FAERS Safety Report 4341414-8 (Version None)
Quarter: 2004Q2

REPORT INFORMATION
  Report Type: 
  Country: None (occurrence: None)
  Receive Date: 20040415
  Receipt Date: 20040402
  Transmission Date: 20050107
  Serious: Yes (Hospitalization)
  Sender: FDA-Public Use
  Company Number: FR-JNJFOC-20040301753

PATIENT
  Age: 57 Year
  Sex: Male
  Weight: 73 kg

DRUGS (5)
  1. REMICADE [Suspect]
     Indication: ANKYLOSING SPONDYLITIS
     Dosage: 370 MG, INTRAVENOUS
     Route: 042
     Dates: start: 20031010, end: 20040127
  2. IMMUNOSUPPRESSANT (IMMUNOSUPPRESSIVE AGENTS) [Concomitant]
  3. VOLTAREN [Concomitant]
  4. PROPOFAN (PROPOFAN) [Concomitant]
  5. ANTALVIC (DEXTROPROPOXYPHENE HYDROCHLORIDE) [Concomitant]

REACTIONS (2)
  - AMYOTROPHIC LATERAL SCLEROSIS [None]
  - ANGIOPATHY [None]
